FAERS Safety Report 7227171-6 (Version None)
Quarter: 2011Q1

REPORT INFORMATION
  Report Type: 
  Country: None (occurrence: None)
  Receive Date: 20110111
  Receipt Date: 20110111
  Transmission Date: 20110831
  Serious: Yes (Other)
  Sender: FDA-Public Use
  Company Number: None

PATIENT
  Age: 58 Year
  Sex: Male
  Weight: 116 kg

DRUGS (1)
  1. CLOPIDOGREL [Suspect]
     Indication: CEREBROVASCULAR ACCIDENT PROPHYLAXIS
     Dosage: 75 MG EVERY DAY PO
     Route: 048
     Dates: start: 20100712, end: 20100714

REACTIONS (3)
  - DYSPNOEA [None]
  - ANGIOEDEMA [None]
  - DYSPHAGIA [None]
